FAERS Safety Report 8594688-1 (Version None)
Quarter: 2012Q3

REPORT INFORMATION
  Report Type: 
  Country: None (occurrence: None)
  Receive Date: 20120815
  Receipt Date: 20120807
  Transmission Date: 20120928
  Serious: Yes (Other)
  Sender: FDA-Public Use
  Company Number: US-NAPPMUNDI-USA-2012-0087991

PATIENT
  Sex: Male

DRUGS (5)
  1. CYMBALTA [Concomitant]
     Indication: PAIN
     Dosage: 60 MG, QD PRN
     Route: 048
     Dates: start: 20110519
  2. BENAZEPRIL W/HYDROCHLOROTHIAZIDE [Concomitant]
     Indication: HYPERTENSION
     Dosage: 10-12.5 MG , ONE TABLET QD
     Route: 048
  3. LYRICA [Concomitant]
     Indication: PAIN
     Dosage: 100 MG, TID
     Route: 048
     Dates: start: 20080218
  4. OXYCONTIN [Suspect]
     Indication: PAIN
     Dosage: 40 MG, TID
     Dates: end: 20120501
  5. OXYCONTIN [Suspect]
     Dosage: 40 MG, TID
     Dates: start: 20120701

REACTIONS (2)
  - DYSKINESIA [None]
  - INSOMNIA [None]
